FAERS Safety Report 9595002 (Version 2)
Quarter: 2013Q4

REPORT INFORMATION
  Report Type: Spontaneous
  Country: IT (occurrence: IT)
  Receive Date: 20131004
  Receipt Date: 20131021
  Transmission Date: 20140711
  Serious: Yes (Other)
  Sender: FDA-Public Use
  Company Number: IT-JNJFOC-20130917509

PATIENT
  Age: 44 Year
  Sex: Male
  Weight: 84 kg

DRUGS (4)
  1. STELARA [Suspect]
     Indication: PSORIASIS
     Route: 058
     Dates: start: 20130624
  2. STELARA [Suspect]
     Indication: PSORIASIS
     Route: 058
     Dates: start: 20130916
  3. STELARA [Suspect]
     Indication: PSORIASIS
     Route: 058
     Dates: start: 20091012
  4. RAMIPRIL [Concomitant]
     Route: 048
     Dates: start: 2004

REACTIONS (1)
  - Acute myocardial infarction [Recovered/Resolved]
